FAERS Safety Report 5724442-7 (Version None)
Quarter: 2008Q2

REPORT INFORMATION
  Report Type: 
  Country: None (occurrence: None)
  Receive Date: 20080428
  Receipt Date: 20080415
  Transmission Date: 20081010
  Serious: Yes (Other)
  Sender: FDA-Public Use
  Company Number: 2008009887

PATIENT
  Age: 24 Month

DRUGS (1)
  1. CETIRIZINE HCL [Suspect]
     Dosage: 35 MG ONCE, ORAL
     Route: 048
     Dates: start: 20080404, end: 20080404

REACTIONS (1)
  - ACCIDENTAL DRUG INTAKE BY CHILD [None]
